FAERS Safety Report 22035662 (Version 1)
Quarter: 2023Q1

REPORT INFORMATION
  Report Type: Spontaneous
  Country: US (occurrence: None)
  Receive Date: 20230223
  Receipt Date: 20230223
  Transmission Date: 20230418
  Serious: Yes (Life-Threatening, Hospitalization)
  Sender: FDA-Public Use
  Company Number: None

PATIENT
  Age: 48 Year
  Sex: Male
  Weight: 90 kg

DRUGS (1)
  1. APIXABAN [Suspect]
     Active Substance: APIXABAN
     Indication: Cerebrovascular accident
     Dosage: FREQUENCY : TWICE A DAY;?
     Route: 048
     Dates: start: 20220629, end: 20230216

REACTIONS (4)
  - Basal ganglia haemorrhage [None]
  - Blood pressure systolic increased [None]
  - Hypertension [None]
  - Cerebral infarction [None]

NARRATIVE: CASE EVENT DATE: 20230216
